FAERS Safety Report 17969458 (Version 2)
Quarter: 2020Q3

REPORT INFORMATION
  Report Type: Spontaneous
  Country: US (occurrence: US)
  Receive Date: 20200701
  Receipt Date: 20200702
  Transmission Date: 20201103
  Serious: Yes (Other)
  Sender: FDA-Public Use
  Company Number: US-PFIZER INC-2020250739

PATIENT
  Age: 47 Year
  Sex: Female
  Weight: 68.04 kg

DRUGS (2)
  1. LYRICA [Suspect]
     Active Substance: PREGABALIN
     Dosage: 75 MG, 1X/DAY AT BEDTIME
     Route: 048
  2. LYRICA [Suspect]
     Active Substance: PREGABALIN
     Indication: FIBROMYALGIA
     Dosage: 225 MG, DAILY (75MG, 1 IN THE MORNING AND 2 AT NIGHT)

REACTIONS (7)
  - Herpes zoster [Recovering/Resolving]
  - Somnolence [Unknown]
  - Intentional product misuse [Unknown]
  - Multiple sclerosis [Not Recovered/Not Resolved]
  - Hypothermia [Unknown]
  - Peroneal nerve palsy [Unknown]
  - Fall [Unknown]

NARRATIVE: CASE EVENT DATE: 2006
